FAERS Safety Report 16818623 (Version 1)
Quarter: 2019Q3

REPORT INFORMATION
  Report Type: Spontaneous
  Country: US (occurrence: US)
  Receive Date: 20190917
  Receipt Date: 20190917
  Transmission Date: 20191005
  Serious: No
  Sender: FDA-Public Use
  Company Number: US-HILL DERMACEUTICALS, INC.-2074537

PATIENT
  Age: 65 Year
  Sex: Female
  Weight: 63.64 kg

DRUGS (5)
  1. PROGRAF [Concomitant]
     Active Substance: TACROLIMUS\TACROLIMUS ANHYDROUS
  2. LOSARTAN. [Concomitant]
     Active Substance: LOSARTAN
  3. LEXAPRO [Concomitant]
     Active Substance: ESCITALOPRAM OXALATE
  4. EPIVIR [Concomitant]
     Active Substance: LAMIVUDINE
  5. TOLAK [Suspect]
     Active Substance: FLUOROURACIL
     Indication: ACTINIC KERATOSIS
     Route: 061
     Dates: start: 20190510, end: 20190524

REACTIONS (1)
  - Scab [Recovering/Resolving]

NARRATIVE: CASE EVENT DATE: 20190517
